FAERS Safety Report 21707055 (Version 2)
Quarter: 2023Q1

REPORT INFORMATION
  Report Type: Report from Study
  Country: US (occurrence: US)
  Receive Date: 20221209
  Receipt Date: 20230327
  Transmission Date: 20230417
  Serious: Yes (Other)
  Sender: FDA-Public Use
  Company Number: US-ABBVIE-4229584

PATIENT
  Age: 28 Year
  Sex: Female
  Weight: 60 kg

DRUGS (1)
  1. ORILISSA [Suspect]
     Active Substance: ELAGOLIX SODIUM
     Indication: Product used for unknown indication
     Dosage: 200 MILLIGRAM
     Route: 048

REACTIONS (1)
  - Colostomy [Recovered/Resolved]

NARRATIVE: CASE EVENT DATE: 20221206
